FAERS Safety Report 13095181 (Version 1)
Quarter: 2017Q1

REPORT INFORMATION
  Report Type: Spontaneous
  Country: US (occurrence: US)
  Receive Date: 20170107
  Receipt Date: 20170107
  Transmission Date: 20170428
  Serious: No
  Sender: FDA-Public Use
  Company Number: US-TEVA-720082USA

PATIENT

DRUGS (1)
  1. QVAR [Suspect]
     Active Substance: BECLOMETHASONE DIPROPIONATE
     Indication: ASTHMA

REACTIONS (5)
  - Cough [Recovering/Resolving]
  - Dyspnoea [Recovering/Resolving]
  - Drug ineffective [Unknown]
  - Product physical issue [Unknown]
  - Feeling abnormal [Recovering/Resolving]
